FAERS Safety Report 12528259 (Version 2)
Quarter: 2016Q3

REPORT INFORMATION
  Report Type: Spontaneous
  Country: US (occurrence: US)
  Receive Date: 20160705
  Receipt Date: 20160711
  Transmission Date: 20161109
  Serious: Yes (Hospitalization)
  Sender: FDA-Public Use
  Company Number: US-PFIZER INC-2016325226

PATIENT
  Age: 32 Year
  Sex: Female

DRUGS (9)
  1. CALTRATE 600+D [Concomitant]
     Dosage: UNK
  2. PREDNISONE. [Concomitant]
     Active Substance: PREDNISONE
     Dosage: UNK
  3. PROCHLORPERAZINE MALEATE. [Concomitant]
     Active Substance: PROCHLORPERAZINE MALEATE
     Dosage: UNK
  4. FEMARA [Concomitant]
     Active Substance: LETROZOLE
     Dosage: UNK
  5. ROBAXIN [Concomitant]
     Active Substance: METHOCARBAMOL
     Dosage: UNK
  6. ARIMIDEX [Concomitant]
     Active Substance: ANASTROZOLE
     Dosage: UNK
  7. HYCODAN [Concomitant]
     Active Substance: HOMATROPINE METHYLBROMIDE\HYDROCODONE BITARTRATE
     Dosage: UNK
  8. TESSALON [Concomitant]
     Active Substance: BENZONATATE
     Dosage: UNK
  9. IBRANCE [Suspect]
     Active Substance: PALBOCICLIB
     Indication: BREAST CANCER
     Dosage: 125 MG, UNK
     Dates: start: 20160603

REACTIONS (1)
  - Pleural effusion [Unknown]
